FAERS Safety Report 5977534-1 (Version None)
Quarter: 2008Q4

REPORT INFORMATION
  Report Type: 
  Country: None (occurrence: None)
  Receive Date: 20081125
  Receipt Date: 20081114
  Transmission Date: 20090506
  Serious: Yes (Hospitalization)
  Sender: FDA-Public Use
  Company Number: 8039585

PATIENT
  Age: 15 Year
  Sex: Male
  Weight: 101 kg

DRUGS (1)
  1. KEPPRA [Suspect]
     Dosage: 3000 MG

REACTIONS (1)
  - GUN SHOT WOUND [None]
